FAERS Safety Report 16795103 (Version 1)
Quarter: 2019Q3

REPORT INFORMATION
  Report Type: Spontaneous
  Country: NL (occurrence: NL)
  Receive Date: 20190911
  Receipt Date: 20190911
  Transmission Date: 20191005
  Serious: Yes (Disabling)
  Sender: FDA-Public Use
  Company Number: NL-ABBVIE-19P-114-2917807-00

PATIENT
  Age: 48 Year
  Sex: Female

DRUGS (1)
  1. LUCRIN [Suspect]
     Active Substance: LEUPROLIDE ACETATE
     Indication: UTERINE DISORDER
     Dosage: Q3MONTHS
     Route: 058
     Dates: start: 20181001, end: 20190201

REACTIONS (1)
  - Type 2 diabetes mellitus [Recovering/Resolving]

NARRATIVE: CASE EVENT DATE: 20190216
